FAERS Safety Report 7089638-3 (Version None)
Quarter: 2010Q4

REPORT INFORMATION
  Report Type: 
  Country: None (occurrence: None)
  Receive Date: 20101108
  Receipt Date: 20101105
  Transmission Date: 20110411
  Serious: Yes (Death)
  Sender: FDA-Public Use
  Company Number: BR-B.I. PHARMACEUTICALS,INC./RIDGEFIELD-2010-BR-02686BR

PATIENT
  Age: 83 Year
  Sex: Male

DRUGS (2)
  1. SPIRIVA RESPIMAT [Suspect]
     Indication: LUNG INFECTION
     Dosage: NR
     Dates: start: 20100701, end: 20100701
  2. SERETIDE [Concomitant]
     Dosage: NR

REACTIONS (1)
  - LUNG INFECTION [None]
